FAERS Safety Report 8408628 (Version 8)
Quarter: 2013Q2

REPORT INFORMATION
  Report Type: Spontaneous
  Country: US (occurrence: US)
  Receive Date: 20120216
  Receipt Date: 20130619
  Transmission Date: 20140414
  Serious: Yes (Death, Life-Threatening, Congenital Anomaly, Other)
  Sender: FDA-Public Use
  Company Number: US-PFIZER INC-2012038322

PATIENT
  Sex: Female
  Weight: 3 kg

DRUGS (12)
  1. EFFEXOR XR [Suspect]
     Indication: DEPRESSION
     Dosage: 75 MG, 1X/DAY
     Route: 064
     Dates: start: 20060821
  2. EFFEXOR [Suspect]
     Indication: MOOD SWINGS
     Dosage: ON AND OFF, UNK
     Route: 064
     Dates: start: 2004
  3. EFFEXOR [Suspect]
     Dosage: UNK
     Route: 064
     Dates: start: 20071126
  4. EFFEXOR [Suspect]
     Dosage: 75 MG, 2X/DAY
     Route: 064
     Dates: start: 20080614
  5. FOLIC ACID [Concomitant]
     Dosage: UNK
     Route: 064
     Dates: start: 20100205
  6. OXYTOCIN [Concomitant]
     Dosage: 20UNITS, UNK
     Route: 064
     Dates: start: 20100210
  7. OXYCODONE [Concomitant]
     Indication: PAIN
     Dosage: UNK
     Route: 064
     Dates: start: 20100210
  8. MOTRIN [Concomitant]
     Indication: PAIN
     Dosage: 400 MG, UNK
     Route: 064
     Dates: start: 20100210
  9. TYLENOL [Concomitant]
     Indication: PAIN
     Dosage: 650 MG, UNK
     Route: 064
     Dates: start: 20100210
  10. ZOLPIDEM [Concomitant]
     Indication: PAIN
     Dosage: 5 MG, UNK
     Route: 064
     Dates: start: 20100210
  11. SOLIA [Concomitant]
     Dosage: 0.15-0.03MG, UNK
     Route: 064
     Dates: start: 20090629
  12. PRENATAL VITAMINS [Concomitant]
     Dosage: UNK
     Route: 064

REACTIONS (20)
  - Maternal exposure timing unspecified [Fatal]
  - Hypoplastic left heart syndrome [Fatal]
  - Aortic valve atresia [Fatal]
  - Congenital aortic anomaly [Fatal]
  - Congenital heart valve disorder [Fatal]
  - Atrial septal defect [Fatal]
  - Dilatation ventricular [Fatal]
  - Premature baby [Fatal]
  - Mitral valve hypoplasia [Unknown]
  - Congenital mitral valve stenosis [Unknown]
  - Subvalvular aortic stenosis [Unknown]
  - Patent ductus arteriosus [Unknown]
  - Heart disease congenital [Unknown]
  - Congenital aortic valve incompetence [Unknown]
  - Shone complex [Unknown]
  - Congenital choroid plexus cyst [Unknown]
  - Left atrial dilatation [Unknown]
  - Dilatation ventricular [Unknown]
  - Left ventricular dysfunction [Unknown]
  - Vascular anomaly [Unknown]
